FAERS Safety Report 16741935 (Version 2)
Quarter: 2019Q3

REPORT INFORMATION
  Report Type: Spontaneous
  Country: US (occurrence: US)
  Receive Date: 20190826
  Receipt Date: 20190902
  Transmission Date: 20191005
  Serious: Yes (Other)
  Sender: FDA-Public Use
  Company Number: US-MALLINCKRODT-T201904406

PATIENT

DRUGS (1)
  1. HYDROCODONE/ACETAMINOPHEN [Suspect]
     Active Substance: ACETAMINOPHEN\HYDROCODONE
     Indication: PAIN
     Dosage: UNK
     Route: 065

REACTIONS (8)
  - Depression [Unknown]
  - Drug ineffective [Unknown]
  - Suicidal ideation [Unknown]
  - Headache [Unknown]
  - Dizziness [Unknown]
  - Tinnitus [Unknown]
  - Fatigue [Unknown]
  - Nausea [Unknown]
